FAERS Safety Report 8605672-3 (Version None)
Quarter: 2012Q3

REPORT INFORMATION
  Report Type: 
  Country: None (occurrence: None)
  Receive Date: 20120820
  Receipt Date: 20120815
  Transmission Date: 20120928
  Serious: Yes (Death, Life-Threatening, Hospitalization, Other)
  Sender: FDA-Public Use
  Company Number: US-ASTRAZENECA-2011SE42857

PATIENT
  Age: 83 Year
  Sex: Female

DRUGS (3)
  1. FASLODEX [Suspect]
     Indication: BREAST CANCER RECURRENT
     Route: 030
  2. TAMOXIFEN CITRATE [Suspect]
     Indication: BREAST CANCER
     Route: 048
     Dates: end: 20080101
  3. HIGH BLOOD PRESSURE MEDICINES [Concomitant]

REACTIONS (10)
  - DISEASE PROGRESSION [None]
  - BREAST CANCER RECURRENT [None]
  - GALLBLADDER PERFORATION [None]
  - NAUSEA [None]
  - ABDOMINAL PAIN [None]
  - BREAST CANCER METASTATIC [None]
  - APHAGIA [None]
  - HYPERTENSION [None]
  - HAEMATEMESIS [None]
  - DRUG DOSE OMISSION [None]
